FAERS Safety Report 5304551-7 (Version None)
Quarter: 2007Q2

REPORT INFORMATION
  Report Type: 
  Country: None (occurrence: None)
  Receive Date: 20070419
  Receipt Date: 20070419
  Transmission Date: 20071010
  Serious: Yes (Life-Threatening)
  Sender: FDA-Public Use
  Company Number: None

PATIENT
  Age: 24 Year
  Sex: Male
  Weight: 56 kg

DRUGS (1)
  1. OMNISCAN [Suspect]
     Dosage: 10 ML 1 IV
     Route: 042
     Dates: start: 20061121, end: 20061121

REACTIONS (2)
  - NEPHROGENIC FIBROSING DERMOPATHY [None]
  - PERITONEAL DISORDER [None]
